FAERS Safety Report 7331365-9 (Version None)
Quarter: 2011Q1

REPORT INFORMATION
  Report Type: 
  Country: None (occurrence: None)
  Receive Date: 20110304
  Receipt Date: 20100831
  Transmission Date: 20110831
  Serious: Yes (Other)
  Sender: FDA-Public Use
  Company Number: US-BAYER-201021602NA

PATIENT
  Sex: Female
  Weight: 76 kg

DRUGS (3)
  1. YASMIN [Suspect]
     Indication: PRODUCT USED FOR UNKNOWN INDICATION
     Route: 048
     Dates: start: 20050101, end: 20090415
  2. COUMADIN [Concomitant]
     Indication: THROMBOSIS PROPHYLAXIS
  3. YAZ [Suspect]
     Indication: CONTRACEPTION
     Route: 048
     Dates: start: 20050101, end: 20090415

REACTIONS (5)
  - DEEP VEIN THROMBOSIS [None]
  - PAIN IN EXTREMITY [None]
  - SKIN WARM [None]
  - ERYTHEMA [None]
  - OEDEMA PERIPHERAL [None]
